FAERS Safety Report 24880990 (Version 7)
Quarter: 2025Q4

REPORT INFORMATION
  Report Type: Report from Study
  Country: JP (occurrence: JP)
  Receive Date: 20250124
  Receipt Date: 20251211
  Transmission Date: 20260118
  Serious: Yes (Hospitalization, Other)
  Sender: ASTELLAS
  Company Number: JP-ASTELLAS-2024-AER-017759

PATIENT
  Age: 58 Year
  Sex: Female
  Weight: 56 kg

DRUGS (26)
  1. VYLOY [Suspect]
     Active Substance: ZOLBETUXIMAB-CLZB
     Indication: Gastric cancer
     Route: 065
     Dates: start: 20241002, end: 20241023
  2. VYLOY [Suspect]
     Active Substance: ZOLBETUXIMAB-CLZB
     Route: 065
     Dates: start: 20241204, end: 20250723
  3. CAPECITABINE [Suspect]
     Active Substance: CAPECITABINE
     Indication: Gastric cancer
     Dosage: CAPOX (XELOX)
     Route: 065
     Dates: start: 202409
  4. CAPECITABINE [Suspect]
     Active Substance: CAPECITABINE
     Dosage: CAPOX (XELOX)
     Route: 065
     Dates: start: 20241002
  5. CAPECITABINE [Suspect]
     Active Substance: CAPECITABINE
     Dosage: CAPOX (XELOX)
     Route: 065
     Dates: start: 20241023
  6. CAPECITABINE [Suspect]
     Active Substance: CAPECITABINE
     Dosage: CAPOX (XELOX)
     Route: 065
     Dates: start: 20241204
  7. CAPECITABINE [Suspect]
     Active Substance: CAPECITABINE
     Dosage: CAPOX (XELOX)
     Route: 065
     Dates: start: 20241225
  8. CAPECITABINE [Suspect]
     Active Substance: CAPECITABINE
     Dosage: CAPOX (XELOX)
     Route: 065
     Dates: start: 20250115, end: 20250429
  9. CAPECITABINE [Suspect]
     Active Substance: CAPECITABINE
     Route: 065
     Dates: start: 20250430, end: 20250806
  10. OXALIPLATIN [Suspect]
     Active Substance: OXALIPLATIN
     Indication: Gastric cancer
     Dosage: CAPOX (XELOX), OHP DOSE: 100
     Route: 065
     Dates: start: 20241002
  11. OXALIPLATIN [Suspect]
     Active Substance: OXALIPLATIN
     Dosage: CAPOX (XELOX), OHP DOSE: 100
     Route: 065
     Dates: start: 20241023
  12. OXALIPLATIN [Suspect]
     Active Substance: OXALIPLATIN
     Dosage: CAPOX (XELOX), OHP DOSE: 100
     Route: 065
     Dates: start: 20241204
  13. OXALIPLATIN [Suspect]
     Active Substance: OXALIPLATIN
     Dosage: CAPOX (XELOX), OHP DOSE: 100
     Route: 065
     Dates: start: 20241225
  14. OXALIPLATIN [Suspect]
     Active Substance: OXALIPLATIN
     Dosage: CAPOX (XELOX), OHP DOSE: 100
     Route: 065
     Dates: start: 20250115, end: 20250429
  15. POLARAMINE [Concomitant]
     Active Substance: DEXCHLORPHENIRAMINE MALEATE
     Indication: Antiemetic supportive care
     Route: 065
  16. ALOXI [Concomitant]
     Active Substance: PALONOSETRON HYDROCHLORIDE
     Indication: Antiemetic supportive care
     Route: 065
  17. FOSNETUPITANT CHLORIDE HYDROCHLORIDE [Concomitant]
     Active Substance: FOSNETUPITANT CHLORIDE HYDROCHLORIDE
     Indication: Antiemetic supportive care
     Route: 065
  18. DEXAMETHASONE SODIUM PHOSPHATE [Concomitant]
     Active Substance: DEXAMETHASONE SODIUM PHOSPHATE
     Indication: Antiemetic supportive care
     Route: 065
  19. OLANZAPINE [Concomitant]
     Active Substance: OLANZAPINE
     Indication: Antiemetic supportive care
     Route: 065
  20. SOLDEM 3A [Concomitant]
     Active Substance: CARBOHYDRATES\POTASSIUM CHLORIDE\SODIUM CHLORIDE\SODIUM LACTATE
     Indication: Decreased appetite
     Route: 065
     Dates: start: 20241030, end: 20241115
  21. ASCORBIC ACID [Concomitant]
     Active Substance: ASCORBIC ACID
     Indication: Decreased appetite
     Route: 042
     Dates: start: 20241030, end: 20241105
  22. VITAMEDIN [BENFOTIAMINE;CYANOCOBALAMIN;PYRIDOXINE HYDROCHLORIDE] [Concomitant]
     Indication: Decreased appetite
     Route: 042
     Dates: start: 20241030, end: 20241105
  23. VEKLURY [Concomitant]
     Active Substance: REMDESIVIR
     Indication: COVID-19
     Route: 042
     Dates: start: 20241031, end: 20241031
  24. VEKLURY [Concomitant]
     Active Substance: REMDESIVIR
     Route: 042
     Dates: start: 20241101, end: 20241102
  25. FUROSEMIDE [Concomitant]
     Active Substance: FUROSEMIDE
     Indication: Oedema peripheral
     Route: 048
     Dates: start: 20241204
  26. SPIRONOLACTONE [Concomitant]
     Active Substance: SPIRONOLACTONE
     Indication: Oedema peripheral
     Route: 065
     Dates: start: 20241204

REACTIONS (20)
  - Malaise [Recovered/Resolved]
  - Neuropathy peripheral [Recovered/Resolved]
  - Decreased appetite [Recovered/Resolved]
  - COVID-19 [Recovered/Resolved]
  - Protein-losing gastroenteropathy [Recovered/Resolved]
  - Gastric mucosal lesion [Unknown]
  - Gastritis [Recovered/Resolved]
  - Hypoalbuminaemia [Not Recovered/Not Resolved]
  - Oedema peripheral [Recovered/Resolved]
  - Stomatitis [Recovered/Resolved]
  - Diarrhoea [Recovered/Resolved]
  - Dysgeusia [Recovered/Resolved]
  - Weight decreased [Not Recovered/Not Resolved]
  - Dizziness [Recovered/Resolved]
  - Alanine aminotransferase increased [Recovered/Resolved]
  - Gastritis [Unknown]
  - Diarrhoea [Unknown]
  - Decreased appetite [Unknown]
  - Dysgeusia [Unknown]
  - Accidental overdose [Unknown]

NARRATIVE: CASE EVENT DATE: 20241002
